FAERS Safety Report 26168426 (Version 1)
Quarter: 2025Q4

REPORT INFORMATION
  Report Type: Spontaneous
  Country: US (occurrence: US)
  Receive Date: 20251217
  Receipt Date: 20251217
  Transmission Date: 20260118
  Serious: No
  Sender: ROCHE
  Company Number: US-ROCHE-10000454351

PATIENT
  Sex: Female

DRUGS (7)
  1. XOLAIR [Suspect]
     Active Substance: OMALIZUMAB
     Indication: Urticaria
     Dates: start: 2025
  2. XOLAIR [Suspect]
     Active Substance: OMALIZUMAB
     Indication: Asthma
     Dates: start: 2025, end: 2025
  3. XOLAIR [Suspect]
     Active Substance: OMALIZUMAB
     Indication: Hypersensitivity
  4. EPIPEN [Concomitant]
     Active Substance: EPINEPHRINE
  5. PREDNISONE [Concomitant]
     Active Substance: PREDNISONE
  6. CYCLOSPORINE [Concomitant]
     Active Substance: CYCLOSPORINE
  7. ELIQUIS [Concomitant]
     Active Substance: APIXABAN

REACTIONS (4)
  - Underdose [Unknown]
  - Drug delivery system malfunction [Unknown]
  - No adverse event [Unknown]
  - Accidental exposure to product [Unknown]

NARRATIVE: CASE EVENT DATE: 20251101
